FAERS Safety Report 24527066 (Version 1)
Quarter: 2024Q4

REPORT INFORMATION
  Report Type: Other
  Country: CA (occurrence: CA)
  Receive Date: 20241021
  Receipt Date: 20241021
  Transmission Date: 20250114
  Serious: Yes (Other)
  Sender: APOTEX
  Company Number: CA-APOTEX-2024AP012030

PATIENT
  Sex: Female

DRUGS (1)
  1. TAMOXIFEN [Suspect]
     Active Substance: TAMOXIFEN
     Indication: Breast cancer female
     Dosage: 10 MILLIGRAM, QD
     Route: 048

REACTIONS (6)
  - Abdominal pain upper [Unknown]
  - Back pain [Unknown]
  - Feeding disorder [Unknown]
  - Pancreatitis [Unknown]
  - Hepatitis [Unknown]
  - Hot flush [Unknown]
